FAERS Safety Report 23188744 (Version 1)
Quarter: 2023Q4

REPORT INFORMATION
  Report Type: Spontaneous
  Country: US (occurrence: US)
  Receive Date: 20231115
  Receipt Date: 20231115
  Transmission Date: 20240109
  Serious: No
  Sender: FDA-Public Use
  Company Number: US-PFIZER INC-202300361322

PATIENT
  Age: 55 Year
  Sex: Female

DRUGS (1)
  1. XELJANZ XR [Suspect]
     Active Substance: TOFACITINIB CITRATE
     Indication: Rheumatoid arthritis
     Dosage: 11 MG, 1X/DAY
     Route: 048

REACTIONS (11)
  - Arthralgia [Unknown]
  - Joint swelling [Unknown]
  - Hypoaesthesia [Unknown]
  - Paraesthesia [Unknown]
  - Hyperhidrosis [Unknown]
  - Swelling [Unknown]
  - Inflammatory marker increased [Unknown]
  - Osteoarthritis [Unknown]
  - Iliotibial band syndrome [Unknown]
  - Greater trochanteric pain syndrome [Unknown]
  - Pain in extremity [Unknown]
